FAERS Safety Report 15452121 (Version 1)
Quarter: 2018Q4

REPORT INFORMATION
  Report Type: Spontaneous
  Country: US (occurrence: US)
  Receive Date: 20181001
  Receipt Date: 20181001
  Transmission Date: 20190204
  Serious: No
  Sender: FDA-Public Use
  Company Number: US-NEOS THERAPEUTICS, LP-2018NEO00088

PATIENT
  Age: 9 Year
  Sex: Male
  Weight: 24.49 kg

DRUGS (1)
  1. COTEMPLA XR-ODT [Suspect]
     Active Substance: METHYLPHENIDATE
     Indication: ATTENTION DEFICIT/HYPERACTIVITY DISORDER
     Dosage: 17.3 MG, 1X /DAY
     Route: 048
     Dates: start: 20180711, end: 20180717

REACTIONS (3)
  - Aggression [Recovered/Resolved]
  - Abnormal behaviour [Recovered/Resolved]
  - Reduced facial expression [Recovered/Resolved]

NARRATIVE: CASE EVENT DATE: 201807
